FAERS Safety Report 5832649-3 (Version None)
Quarter: 2008Q3

REPORT INFORMATION
  Report Type: 
  Country: None (occurrence: None)
  Receive Date: 20080804
  Receipt Date: 20080728
  Transmission Date: 20090109
  Serious: Yes (Other)
  Sender: FDA-Public Use
  Company Number: PHHY2008JP10428

PATIENT
  Sex: Female
  Weight: 48 kg

DRUGS (14)
  1. TEGRETOL [Suspect]
     Indication: TRIGEMINAL NEURALGIA
     Dosage: 200 MG, QD
     Route: 048
     Dates: start: 20080410, end: 20080527
  2. MINOCYCLINE HCL [Suspect]
  3. HYPEN [Suspect]
     Route: 048
  4. MINOCYCLINE HYDROCHLORIDE [Suspect]
     Indication: URINARY TRACT INFECTION
     Dosage: 200 MG, UNK
     Dates: start: 20080517, end: 20080527
  5. ETODOLAC [Suspect]
     Indication: BACK PAIN
     Dosage: 400 MG, UNK
     Route: 048
     Dates: end: 20080527
  6. BUFFERIN [Concomitant]
     Indication: ANGINA PECTORIS
     Dosage: 81 MG
     Route: 048
     Dates: start: 20080331
  7. TROXSIN [Concomitant]
     Indication: GASTRITIS
     Dosage: 2DF
     Route: 048
     Dates: start: 20080331, end: 20080527
  8. MAGNESIUM OXIDE [Concomitant]
     Indication: CONSTIPATION
     Dosage: 0.45 G, UNK
     Route: 048
     Dates: start: 20080331
  9. BESACOLIN [Concomitant]
     Indication: CONSTIPATION
     Dosage: 0.6 G, UNK
     Route: 048
     Dates: start: 20080526
  10. ASASION [Concomitant]
     Indication: INSOMNIA
     Dosage: 1DF
     Route: 048
  11. RIFATAC L [Concomitant]
     Indication: ANGINA PECTORIS
     Dosage: 1DF
  12. IMIPENEM [Concomitant]
  13. CILASTATIN [Concomitant]
  14. BIOTIN [Concomitant]

REACTIONS (24)
  - BLOOD CREATINE PHOSPHOKINASE INCREASED [None]
  - BLOOD LACTATE DEHYDROGENASE INCREASED [None]
  - BLOOD SODIUM DECREASED [None]
  - BLOOD URINE PRESENT [None]
  - C-REACTIVE PROTEIN INCREASED [None]
  - DRUG RASH WITH EOSINOPHILIA AND SYSTEMIC SYMPTOMS [None]
  - EOSINOPHIL COUNT INCREASED [None]
  - ERYTHEMA [None]
  - GAMMA-GLUTAMYLTRANSFERASE INCREASED [None]
  - HAEMATOCRIT DECREASED [None]
  - HAEMOGLOBIN DECREASED [None]
  - HEPATIC FUNCTION ABNORMAL [None]
  - LYMPHADENOPATHY [None]
  - NEUTROPHIL COUNT DECREASED [None]
  - PAIN [None]
  - PAROTITIS [None]
  - PROTEIN URINE PRESENT [None]
  - PYREXIA [None]
  - RASH [None]
  - RED BLOOD CELL COUNT DECREASED [None]
  - SWELLING [None]
  - UROBILIN URINE PRESENT [None]
  - URTICARIA [None]
  - WHITE BLOOD CELL COUNT INCREASED [None]
